FAERS Safety Report 23563169 (Version 1)
Quarter: 2024Q1

REPORT INFORMATION
  Report Type: Spontaneous
  Country: US (occurrence: US)
  Receive Date: 20240226
  Receipt Date: 20240226
  Transmission Date: 20240410
  Serious: Yes (Other)
  Sender: FDA-Public Use
  Company Number: US-SA-SAC20240220000102

PATIENT
  Age: 45 Year
  Sex: Female

DRUGS (1)
  1. DUPIXENT [Suspect]
     Active Substance: DUPILUMAB
     Indication: Eosinophilic oesophagitis
     Dosage: 300 MG, QW
     Route: 058
     Dates: start: 20240118, end: 20240125

REACTIONS (4)
  - Anaphylactic reaction [Unknown]
  - Swelling face [Not Recovered/Not Resolved]
  - Lymphadenopathy [Unknown]
  - Vision blurred [Unknown]

NARRATIVE: CASE EVENT DATE: 20240118
